FAERS Safety Report 7542229-X (Version None)
Quarter: 2011Q2

REPORT INFORMATION
  Report Type: 
  Country: None (occurrence: None)
  Receive Date: 20110613
  Receipt Date: 20110609
  Transmission Date: 20111010
  Serious: Yes (Life-Threatening)
  Sender: FDA-Public Use
  Company Number: BR-PFIZER INC-2011127148

PATIENT
  Age: 52 Year
  Sex: Male
  Weight: 88 kg

DRUGS (6)
  1. VARENICLINE TARTRATE [Suspect]
     Dosage: 1 MG, 2X/DAY
     Route: 048
     Dates: end: 20110601
  2. ASPIRIN [Concomitant]
     Indication: CORONARY ARTERY DISEASE
     Dosage: 100 MG, 1X/DAY
  3. LIPITOR [Concomitant]
     Indication: DYSLIPIDAEMIA
     Dosage: 10 MG, 1X/DAY
  4. RANITIDINE [Concomitant]
     Dosage: 150 MG, 2X/DAY
  5. VARENICLINE TARTRATE [Suspect]
     Indication: TOBACCO USER
     Dosage: UNK
     Route: 048
     Dates: start: 20101104
  6. CLOPIDOGREL [Concomitant]
     Dosage: 75 MG, 1X/DAY

REACTIONS (1)
  - TOBACCO USER [None]
